FAERS Safety Report 9827801 (Version 1)
Quarter: 2013Q4

REPORT INFORMATION
  Report Type: Spontaneous
  Country: US (occurrence: None)
  Receive Date: 20131223
  Receipt Date: 20131223
  Transmission Date: 20140711
  Serious: No
  Sender: FDA-Public Use
  Company Number: 218109LEO

PATIENT
  Sex: Male

DRUGS (1)
  1. PICATO(0.015%, GEL) [Suspect]
     Route: 061

REACTIONS (5)
  - Pain [None]
  - Pain [None]
  - Burning sensation [None]
  - Swelling [None]
  - Incorrect drug administration duration [None]
